FAERS Safety Report 23949004 (Version 1)
Quarter: 2024Q2

REPORT INFORMATION
  Report Type: Spontaneous
  Country: GB (occurrence: GB)
  Receive Date: 20240607
  Receipt Date: 20240607
  Transmission Date: 20240716
  Serious: Yes (Disabling, Other)
  Sender: FDA-Public Use
  Company Number: None

PATIENT
  Age: 21 Year
  Sex: Female

DRUGS (6)
  1. HYDROCORTISONE [Suspect]
     Active Substance: HYDROCORTISONE\HYDROCORTISONE ACETATE
     Indication: Eczema
     Route: 065
     Dates: start: 2003, end: 2016
  2. CLOBETASONE [Suspect]
     Active Substance: CLOBETASONE
     Indication: Eczema
     Route: 065
     Dates: start: 2004, end: 2013
  3. BETNOVATE [Suspect]
     Active Substance: BETAMETHASONE
     Indication: Eczema
     Route: 065
     Dates: start: 2007, end: 2012
  4. MOMETASONE [Suspect]
     Active Substance: MOMETASONE
     Indication: Eczema
     Route: 065
     Dates: start: 2012, end: 2012
  5. ELOCON [Suspect]
     Active Substance: MOMETASONE FUROATE
     Indication: Eczema
     Route: 065
     Dates: start: 2013, end: 2013
  6. BETAMETHASONE VALERATE [Suspect]
     Active Substance: BETAMETHASONE VALERATE
     Indication: Eczema
     Route: 065
     Dates: start: 2015, end: 2015

REACTIONS (16)
  - Skin weeping [Recovering/Resolving]
  - Sweating fever [Recovering/Resolving]
  - Body temperature fluctuation [Not Recovered/Not Resolved]
  - Nasopharyngitis [Not Recovered/Not Resolved]
  - Skin fissures [Not Recovered/Not Resolved]
  - Pain [Not Recovered/Not Resolved]
  - Fatigue [Not Recovered/Not Resolved]
  - Insomnia [Not Recovered/Not Resolved]
  - Musculoskeletal stiffness [Not Recovered/Not Resolved]
  - Suicidal ideation [Not Recovered/Not Resolved]
  - Medication error [Unknown]
  - Alopecia [Unknown]
  - Erythema [Not Recovered/Not Resolved]
  - Dry skin [Not Recovered/Not Resolved]
  - Skin burning sensation [Recovering/Resolving]
  - Pruritus [Unknown]

NARRATIVE: CASE EVENT DATE: 20210329
